FAERS Safety Report 5492079-3 (Version None)
Quarter: 2007Q4

REPORT INFORMATION
  Report Type: 
  Country: None (occurrence: None)
  Receive Date: 20071022
  Receipt Date: 20071010
  Transmission Date: 20080405
  Serious: Yes (Other)
  Sender: FDA-Public Use
  Company Number: US-WYE-H00623907

PATIENT
  Sex: Female

DRUGS (5)
  1. EFFEXOR XR [Suspect]
     Route: 048
  2. EFFEXOR XR [Suspect]
     Dosage: TAPERED TO 37.5 MG
     Route: 048
     Dates: end: 20071009
  3. EFFEXOR XR [Suspect]
     Route: 048
     Dates: start: 20071010
  4. NEXIUM [Concomitant]
     Dosage: UNKNOWN
  5. WELLBUTRIN [Concomitant]
     Dosage: UNKNOWN

REACTIONS (1)
  - BENIGN INTRACRANIAL HYPERTENSION [None]
